FAERS Safety Report 16260144 (Version 1)
Quarter: 2019Q2

REPORT INFORMATION
  Report Type: Spontaneous
  Country: US (occurrence: US)
  Receive Date: 20190327
  Receipt Date: 20190327
  Transmission Date: 20190711
  Serious: Yes (Life-Threatening, Disabling, Congenital Anomaly)
  Sender: FDA-Public Use
  Company Number: None

PATIENT
  Age: 39 Year
  Sex: Female
  Weight: 83.91 kg

DRUGS (3)
  1. ABILIFY MAINTENA [Suspect]
     Active Substance: ARIPIPRAZOLE
     Indication: ALCOHOL ABUSE
     Dosage: ?          QUANTITY:400 MG MILLIGRAM(S);?
     Route: 058
     Dates: start: 20030110
  2. ABILIFY MAINTENA [Suspect]
     Active Substance: ARIPIPRAZOLE
     Indication: DRUG ABUSE
     Dosage: ?          QUANTITY:400 MG MILLIGRAM(S);?
     Route: 058
     Dates: start: 20030110
  3. ABILIFY MAINTENA [Suspect]
     Active Substance: ARIPIPRAZOLE
     Indication: PRODUCT USED FOR UNKNOWN INDICATION
     Dosage: ?          QUANTITY:400 MG MILLIGRAM(S);?
     Route: 058
     Dates: start: 20030110

REACTIONS (7)
  - Fine motor skill dysfunction [None]
  - Thermal burn [None]
  - Headache [None]
  - Feeling drunk [None]
  - Narcolepsy [None]
  - Tongue discomfort [None]
  - Fall [None]

NARRATIVE: CASE EVENT DATE: 20190319
